FAERS Safety Report 6183196-3 (Version None)
Quarter: 2009Q2

REPORT INFORMATION
  Report Type: 
  Country: None (occurrence: None)
  Receive Date: 20090506
  Receipt Date: 20090501
  Transmission Date: 20091009
  Serious: Yes (Other)
  Sender: FDA-Public Use
  Company Number: TPA2009A00866

PATIENT
  Age: 22 Month
  Sex: Male

DRUGS (2)
  1. PREVACID [Suspect]
     Indication: DRUG USE FOR UNKNOWN INDICATION
     Dosage: 45 MG, 1 IN 1 D, PER ORAL
     Route: 048
     Dates: start: 20071001
  2. FLOMAX [Concomitant]

REACTIONS (1)
  - MYOCLONIC EPILEPSY [None]
